FAERS Safety Report 16934338 (Version 4)
Quarter: 2020Q4

REPORT INFORMATION
  Report Type: Report from Study
  Country: PL (occurrence: PL)
  Receive Date: 20191018
  Receipt Date: 20201005
  Transmission Date: 20210113
  Serious: Yes (Death, Hospitalization)
  Sender: FDA-Public Use
  Company Number: PL-ROCHE-2443662

PATIENT
  Age: 78 Year
  Sex: Male

DRUGS (4)
  1. CO-VALSACOR [Concomitant]
     Indication: HYPERTENSION
     Dosage: 160 + 25 MG
     Dates: start: 20191009
  2. BETALOC [Concomitant]
     Active Substance: METOPROLOL
     Indication: HYPERTENSION
     Dates: start: 20191009
  3. AMLOPIN [Concomitant]
     Indication: HYPERTENSION
     Dates: start: 20191007
  4. ENTRECTINIB [Suspect]
     Active Substance: ENTRECTINIB
     Indication: NEOPLASM
     Dosage: LAST DOSE PRIOR TO SAE: 09/OCT/2019
     Route: 048
     Dates: start: 20191003, end: 20191010

REACTIONS (1)
  - Cerebrovascular accident [Fatal]

NARRATIVE: CASE EVENT DATE: 20191010
